FAERS Safety Report 24956423 (Version 1)
Quarter: 2025Q1

REPORT INFORMATION
  Report Type: Spontaneous
  Country: US (occurrence: US)
  Receive Date: 20250211
  Receipt Date: 20250211
  Transmission Date: 20250409
  Serious: No
  Sender: PERRIGO
  Company Number: US-PERRIGO-24US009950

PATIENT
  Sex: Female
  Weight: 57.143 kg

DRUGS (2)
  1. NAPROXEN SODIUM [Suspect]
     Active Substance: NAPROXEN SODIUM
     Indication: Myalgia
     Route: 048
     Dates: start: 2016, end: 20241017
  2. NAPROXEN SODIUM [Suspect]
     Active Substance: NAPROXEN SODIUM
     Indication: Neuralgia

REACTIONS (4)
  - Gastrointestinal pain [Recovered/Resolved]
  - Diarrhoea [Recovered/Resolved]
  - Expired product administered [Unknown]
  - Product use in unapproved indication [Unknown]

NARRATIVE: CASE EVENT DATE: 20160101
